FAERS Safety Report 12395631 (Version 1)
Quarter: 2016Q2

REPORT INFORMATION
  Report Type: Spontaneous
  Country: US (occurrence: US)
  Receive Date: 20160523
  Receipt Date: 20160523
  Transmission Date: 20160815
  Serious: Yes (Other)
  Sender: FDA-Public Use
  Company Number: US-MDT-ADR-2015-02314

PATIENT
  Age: 51 Year
  Sex: Female

DRUGS (1)
  1. COMPOUNDED BACLOFEN [Suspect]
     Active Substance: BACLOFEN
     Dosage: 352.69 MCG/DAY
     Route: 037

REACTIONS (2)
  - Implant site extravasation [Unknown]
  - Implant site infection [Unknown]

NARRATIVE: CASE EVENT DATE: 20151201
